FAERS Safety Report 8239110-X (Version None)
Quarter: 2012Q1

REPORT INFORMATION
  Report Type: 
  Country: None (occurrence: None)
  Receive Date: 20120328
  Receipt Date: 20120321
  Transmission Date: 20120608
  Serious: Yes (Other)
  Sender: FDA-Public Use
  Company Number: US-AMGEN-USASP2011032164

PATIENT
  Age: 65 Year
  Sex: Female
  Weight: 89.342 kg

DRUGS (9)
  1. NEURONTIN [Concomitant]
     Indication: NEUROPATHY PERIPHERAL
     Dosage: 1200 MG, BID
     Route: 048
  2. METHOTREXATE [Concomitant]
     Indication: RHEUMATOID ARTHRITIS
     Dosage: 2.5 MG, QWK
     Route: 048
  3. FOLIC ACID [Concomitant]
     Dosage: 1 MG, QD
     Route: 048
  4. ENBREL [Suspect]
     Indication: RHEUMATOID ARTHRITIS
     Dosage: 50 MG, QWK
     Route: 058
     Dates: start: 20110515
  5. CALCIUM CARBONATE [Concomitant]
     Indication: OSTEOPENIA
     Dosage: 1200 MG, QD
  6. PREDNISONE TAB [Concomitant]
     Indication: RHEUMATOID ARTHRITIS
     Dosage: 5 MG, BID
     Route: 048
  7. NEURONTIN [Concomitant]
     Dosage: 600 MG, BID
     Route: 048
  8. PREDNISONE TAB [Concomitant]
     Dosage: 2.5 MG, QD
     Route: 048
  9. FLEXERIL [Concomitant]
     Indication: MUSCLE SPASMS
     Dosage: 100 MG, Q8H
     Route: 048

REACTIONS (27)
  - HEADACHE [None]
  - GINGIVAL PAIN [None]
  - MUSCULOSKELETAL STIFFNESS [None]
  - RHEUMATOID ARTHRITIS [None]
  - JOINT SWELLING [None]
  - HYPOKALAEMIA [None]
  - MUSCULOSKELETAL PAIN [None]
  - INCREASED TENDENCY TO BRUISE [None]
  - OBESITY [None]
  - SURGERY [None]
  - FATIGUE [None]
  - JOINT STIFFNESS [None]
  - LEUKOCYTOSIS [None]
  - HYPERTENSION [None]
  - MUSCLE SPASMS [None]
  - DIZZINESS [None]
  - WEIGHT INCREASED [None]
  - OSTEOPENIA [None]
  - KNEE ARTHROPLASTY [None]
  - ASTHENIA [None]
  - ARTHRALGIA [None]
  - GINGIVAL SWELLING [None]
  - OSTEOARTHRITIS [None]
  - DECREASED APPETITE [None]
  - CONTUSION [None]
  - VERTIGO [None]
  - SLEEP APNOEA SYNDROME [None]
